FAERS Safety Report 13302384 (Version 1)
Quarter: 2017Q1

REPORT INFORMATION
  Report Type: Spontaneous
  Country: US (occurrence: US)
  Receive Date: 20170307
  Receipt Date: 20170307
  Transmission Date: 20170428
  Serious: Yes (Hospitalization, Other)
  Sender: FDA-Public Use
  Company Number: US-TEVA-745029USA

PATIENT
  Age: 68 Year
  Sex: Male
  Weight: 69.01 kg

DRUGS (2)
  1. ADCIRCA [Concomitant]
     Active Substance: TADALAFIL
     Route: 065
  2. EPOPROSTENOL. [Suspect]
     Active Substance: EPOPROSTENOL
     Indication: PULMONARY HYPERTENSION
     Dosage: 23.75 NG/KG/MIN IV CONTINUOUS
     Route: 042
     Dates: start: 20150707

REACTIONS (2)
  - Arterial rupture [Unknown]
  - Epistaxis [Unknown]

NARRATIVE: CASE EVENT DATE: 20170214
